FAERS Safety Report 5567348-9 (Version None)
Quarter: 2007Q4

REPORT INFORMATION
  Report Type: 
  Country: None (occurrence: None)
  Receive Date: 20071219
  Receipt Date: 20071017
  Transmission Date: 20080405
  Serious: No
  Sender: FDA-Public Use
  Company Number: US-ABBOTT-07P-163-0421808-00

PATIENT
  Sex: Male

DRUGS (3)
  1. DILAUDID [Suspect]
     Indication: PAIN
     Route: 048
     Dates: start: 20070701
  2. DILAUDID [Suspect]
     Indication: FOOT FRACTURE
  3. MORPHINE SULFATE [Concomitant]
     Indication: PAIN
     Route: 048

REACTIONS (1)
  - DRUG SCREEN POSITIVE [None]
